FAERS Safety Report 6945017-8 (Version None)
Quarter: 2010Q3

REPORT INFORMATION
  Report Type: 
  Country: None (occurrence: None)
  Receive Date: 20100827
  Receipt Date: 20100816
  Transmission Date: 20110219
  Serious: Yes (Other)
  Sender: FDA-Public Use
  Company Number: PHHY2010US45494

PATIENT
  Sex: Male

DRUGS (1)
  1. DIOVAN [Suspect]
     Indication: HYPERTENSION
     Dosage: 160 MG

REACTIONS (6)
  - AORTIC ANEURYSM [None]
  - AORTIC VALVE REPLACEMENT [None]
  - MITRAL VALVE REPLACEMENT [None]
  - NEPHRECTOMY [None]
  - PULMONARY ARTERY ANEURYSM [None]
  - RENAL CANCER [None]
